FAERS Safety Report 4949780-7 (Version None)
Quarter: 2006Q1

REPORT INFORMATION
  Report Type: 
  Country: None (occurrence: None)
  Receive Date: 20060321
  Receipt Date: 20060208
  Transmission Date: 20060701
  Serious: Yes (Hospitalization, Other)
  Sender: FDA-Public Use
  Company Number: US-MERCK-0602USA02249

PATIENT
  Age: 76 Year
  Sex: Female
  Weight: 56 kg

DRUGS (10)
  1. VIOXX [Suspect]
     Indication: OSTEOARTHRITIS
     Route: 048
     Dates: start: 19990101, end: 20040930
  2. OXYTROL [Concomitant]
     Route: 065
  3. REMINYL [Concomitant]
     Route: 065
  4. ALTACE [Concomitant]
     Route: 065
  5. NORVASC [Concomitant]
     Route: 065
  6. PLAVIX [Concomitant]
     Route: 065
  7. CELEXA [Concomitant]
     Route: 065
  8. ESTRACE [Concomitant]
     Route: 065
  9. OCUVITE [Concomitant]
     Route: 065
  10. MIACALCIN [Concomitant]
     Route: 065

REACTIONS (5)
  - ANGINA PECTORIS [None]
  - CARDIAC DISORDER [None]
  - CEREBROVASCULAR ACCIDENT [None]
  - DEPRESSION [None]
  - TRANSIENT ISCHAEMIC ATTACK [None]
